FAERS Safety Report 13824719 (Version 1)
Quarter: 2017Q3

REPORT INFORMATION
  Report Type: Spontaneous
  Country: US (occurrence: US)
  Receive Date: 20170802
  Receipt Date: 20170802
  Transmission Date: 20171127
  Serious: Yes (Other)
  Sender: FDA-Public Use
  Company Number: None

PATIENT
  Age: 89 Year
  Sex: Female
  Weight: 41.28 kg

DRUGS (1)
  1. CEFADROFIL 500MG CAPSULE [Suspect]
     Active Substance: CEFADROXIL
     Indication: WOUND INFECTION
     Dosage: 14 PILLS 7 DAYS 7AM 7PM MOUTH
     Route: 048
     Dates: start: 20170315, end: 20170322

REACTIONS (6)
  - Pruritus [None]
  - Rash [None]
  - Diarrhoea [None]
  - Colitis [None]
  - Nausea [None]
  - Confusional state [None]

NARRATIVE: CASE EVENT DATE: 20170324
